FAERS Safety Report 9365982 (Version 2)
Quarter: 2013Q3

REPORT INFORMATION
  Report Type: Spontaneous
  Country: US (occurrence: US)
  Receive Date: 20130625
  Receipt Date: 20130715
  Transmission Date: 20140515
  Serious: No
  Sender: FDA-Public Use
  Company Number: US-PFIZER INC-2013186394

PATIENT
  Age: 31 Year
  Sex: Female
  Weight: 58.96 kg

DRUGS (2)
  1. ADVIL [Suspect]
     Indication: HEADACHE
     Dosage: 200 MG, ONCE A DAY
     Route: 048
  2. ADVIL [Suspect]
     Dosage: 400 MG, ONCE A DAY
     Route: 048
     Dates: end: 20130619

REACTIONS (1)
  - Lip swelling [Not Recovered/Not Resolved]
